FAERS Safety Report 9196546 (Version 1)
Quarter: 2013Q1

REPORT INFORMATION
  Report Type: Spontaneous
  Country: US (occurrence: None)
  Receive Date: 20120709
  Receipt Date: 20120709
  Transmission Date: 20140127
  Serious: Yes (Other)
  Sender: FDA-Public Use
  Company Number: 2012HGS-003531

PATIENT
  Age: 43 Year
  Sex: Female
  Weight: 132 kg

DRUGS (9)
  1. BENLYSTA [Suspect]
     Indication: SYSTEMIC LUPUS ERYTHEMATOSUS
     Route: 041
     Dates: start: 20120402
  2. AMOXICILLIN (AMOXICILLIN) [Suspect]
     Dates: start: 20120413
  3. METHOTREXATE (METHOTREXATE) (METHOTREXATE) [Concomitant]
  4. LISINOPRIL (LISINOPRIL) (LISINOPRIL) [Concomitant]
  5. LOPRESSOR (METOPROLOL TARTRATE) (METOPROLOL TARTRATE) [Concomitant]
  6. CALCIUM (CALCIUM) (CALCIUM) [Concomitant]
  7. VITAMIN B12 (CYANOCOBALAMIN) (CYANOCOBALAMIN) [Concomitant]
  8. B COMPLEX (NICOTINAM. W/PYRIDOXI. HCL/RIBOFL.THIAM. HCL) (PYRIDOXINE HYDROCHLORIDE, THIAMINE HYDROCHLORIDE, RIBOFLAVIN, NICOTINAMIDE) [Concomitant]
  9. FOLIC ACID (FOLIC ACID) (FOLIC ACID) [Concomitant]

REACTIONS (13)
  - Hypersensitivity [None]
  - Local swelling [None]
  - Urticaria [None]
  - Pruritus [None]
  - Palpitations [None]
  - Blood pressure increased [None]
  - Local swelling [None]
  - Hypoaesthesia oral [None]
  - Rhinorrhoea [None]
  - Productive cough [None]
  - Headache [None]
  - Swelling face [None]
  - Erythema [None]
